FAERS Safety Report 23847501 (Version 1)
Quarter: 2024Q2

REPORT INFORMATION
  Report Type: Spontaneous
  Country: US (occurrence: US)
  Receive Date: 20240513
  Receipt Date: 20240513
  Transmission Date: 20240716
  Serious: No
  Sender: FDA-Public Use
  Company Number: US-GLAXOSMITHKLINE-US2024AMR059872

PATIENT
  Sex: Male

DRUGS (1)
  1. ZEJULA [Suspect]
     Active Substance: NIRAPARIB
     Indication: Prostate cancer
     Dosage: 300 MG, QD

REACTIONS (2)
  - Off label use [Unknown]
  - Product use issue [Unknown]
